FAERS Safety Report 5248151-6 (Version None)
Quarter: 2007Q1

REPORT INFORMATION
  Report Type: 
  Country: None (occurrence: None)
  Receive Date: 20070227
  Receipt Date: 20060327
  Transmission Date: 20070707
  Serious: No
  Sender: FDA-Public Use
  Company Number: US-BRISTOL-MYERS SQUIBB COMPANY-13327853

PATIENT
  Age: 45 Year
  Sex: Male
  Weight: 117 kg

DRUGS (4)
  1. GLUCOPHAGE [Suspect]
     Dates: start: 20060213, end: 20060213
  2. BYETTA [Suspect]
     Indication: DIABETES MELLITUS NON-INSULIN-DEPENDENT
     Route: 058
     Dates: start: 20060211, end: 20060222
  3. AMBIEN [Concomitant]
     Dates: start: 20010101
  4. VALIUM [Concomitant]
     Dates: start: 19850101

REACTIONS (14)
  - ABDOMINAL DISTENSION [None]
  - ANURIA [None]
  - ASTHMA [None]
  - BLOOD GLUCOSE INCREASED [None]
  - DECREASED APPETITE [None]
  - DIARRHOEA [None]
  - DYSPNOEA [None]
  - HAEMATOCHEZIA [None]
  - HEADACHE [None]
  - INJECTION SITE PAIN [None]
  - RASH PRURITIC [None]
  - SKIN TIGHTNESS [None]
  - VOMITING [None]
  - WEIGHT DECREASED [None]
